FAERS Safety Report 8149104-0 (Version None)
Quarter: 2012Q1

REPORT INFORMATION
  Report Type: 
  Country: None (occurrence: None)
  Receive Date: 20120218
  Receipt Date: 20110830
  Transmission Date: 20120608
  Serious: No
  Sender: FDA-Public Use
  Company Number: US-ALLERGAN-1111591US

PATIENT
  Age: 52 Year
  Sex: Female

DRUGS (1)
  1. BOTOX COSMETIC [Suspect]
     Indication: SKIN WRINKLING
     Dosage: 16 UNITS, SINGLE
     Route: 030
     Dates: start: 20110823, end: 20110823

REACTIONS (5)
  - DIZZINESS [None]
  - MYALGIA [None]
  - MENSTRUAL DISORDER [None]
  - PAIN IN EXTREMITY [None]
  - NAUSEA [None]
